FAERS Safety Report 12118991 (Version 1)
Quarter: 2016Q1

REPORT INFORMATION
  Report Type: Spontaneous
  Country: US (occurrence: US)
  Receive Date: 20160226
  Receipt Date: 20160226
  Transmission Date: 20160526
  Serious: Yes (Other)
  Sender: FDA-Public Use
  Company Number: US-ASTELLAS-2016US006541

PATIENT
  Age: 52 Year
  Sex: Male
  Weight: 140 kg

DRUGS (1)
  1. TACROLIMUS. [Suspect]
     Active Substance: TACROLIMUS
     Indication: GRAFT VERSUS HOST DISEASE
     Dosage: UNK UNK, UNKNOWN FREQ.
     Route: 065

REACTIONS (5)
  - Myofascitis [Recovered/Resolved]
  - Fungal skin infection [Unknown]
  - Chronic graft versus host disease [Unknown]
  - Off label use [Unknown]
  - Parotid gland enlargement [Recovered/Resolved]
